FAERS Safety Report 8169407-3 (Version None)
Quarter: 2012Q1

REPORT INFORMATION
  Report Type: 
  Country: None (occurrence: None)
  Receive Date: 20120222
  Receipt Date: 20120216
  Transmission Date: 20120608
  Serious: Yes (Death)
  Sender: FDA-Public Use
  Company Number: DSA_48728_2012

PATIENT
  Sex: Male

DRUGS (2)
  1. XENAZINE [Suspect]
     Indication: DYSKINESIA
     Dosage: (12.5 MG BID ORAL)
     Route: 048
     Dates: start: 20110921
  2. XENAZINE [Suspect]
     Indication: CARDIOVASCULAR DISORDER
     Dosage: (12.5 MG BID ORAL)
     Route: 048
     Dates: start: 20110921

REACTIONS (1)
  - DEATH [None]
